FAERS Safety Report 15575886 (Version 1)
Quarter: 2018Q4

REPORT INFORMATION
  Report Type: Other
  Country: DE (occurrence: DE)
  Receive Date: 20181101
  Receipt Date: 20181101
  Transmission Date: 20190205
  Serious: Yes (Congenital Anomaly, Other)
  Sender: FDA-Public Use
  Company Number: DE-MACLEODS PHARMACEUTICALS US LTD-MAC2018018299

PATIENT

DRUGS (4)
  1. PANTOPRAZOLE [Suspect]
     Active Substance: PANTOPRAZOLE
     Indication: GASTROOESOPHAGEAL REFLUX DISEASE
     Dosage: ALTERNATING WITH OMEPRAZOLE
     Route: 064
  2. OMEPRAZOLE. [Suspect]
     Active Substance: OMEPRAZOLE
     Indication: GASTROOESOPHAGEAL REFLUX DISEASE
     Dosage: ALTERNATING WITH PANTOPRAZOLE
     Route: 064
  3. AMOXICLAV [Concomitant]
     Active Substance: AMOXICILLIN\CLAVULANATE POTASSIUM
     Indication: BRONCHITIS
     Dosage: UNK
     Route: 064
     Dates: start: 20171111, end: 20171117
  4. OLMESARTAN [Suspect]
     Active Substance: OLMESARTAN
     Indication: ACCIDENTAL EXPOSURE TO PRODUCT
     Dosage: 40 [MG/D ]
     Route: 064
     Dates: start: 20171109, end: 20171116

REACTIONS (3)
  - Congenital megaureter [Not Recovered/Not Resolved]
  - Pyelocaliectasis [Recovering/Resolving]
  - Foetal exposure during pregnancy [Unknown]

NARRATIVE: CASE EVENT DATE: 20180327
